FAERS Safety Report 9276185 (Version 1)
Quarter: 2012Q4

REPORT INFORMATION
  Report Type: Spontaneous
  Country: GB (occurrence: None)
  Receive Date: 20121109
  Receipt Date: 20121109
  Transmission Date: 20130627
  Serious: Yes (Other)
  Sender: FDA-Public Use
  Company Number: 2012S1000679

PATIENT
  Age: 67 Year
  Sex: Male

DRUGS (5)
  1. CUBICIN (DAPTOMYCIN) [Suspect]
     Indication: STAPHYLOCOCCUS EPIDERMIDIS INFECTION
  2. CUBICIN (DAPTOMYCIN) [Suspect]
  3. RIFAMPICIN [Suspect]
     Indication: DRUG USE FOR UNKNOWN INDICATION
  4. VANCOMYCIN [Concomitant]
  5. GENTAMICIN [Concomitant]

REACTIONS (1)
  - Vasculitic rash [None]
